FAERS Safety Report 13776236 (Version 1)
Quarter: 2017Q3

REPORT INFORMATION
  Report Type: Spontaneous
  Country: US (occurrence: US)
  Receive Date: 20170721
  Receipt Date: 20170721
  Transmission Date: 20171127
  Serious: Yes (Other)
  Sender: FDA-Public Use
  Company Number: US-CORDEN PHARMA LATINA S.P.A.-US-2017COR000164

PATIENT
  Age: 13 Year
  Sex: Male

DRUGS (5)
  1. ETOPOSIDE. [Suspect]
     Active Substance: ETOPOSIDE
     Indication: INTRACRANIAL GERM CELL TUMOUR
     Dosage: UNK, PART OF FIRST FULL DOSE TRANSPLANT
  2. BUSULFAN. [Suspect]
     Active Substance: BUSULFAN
     Indication: INTRACRANIAL GERM CELL TUMOUR
     Dosage: UNK, PART OF SECOND TRANSPLANT
  3. CARBOPLATIN. [Suspect]
     Active Substance: CARBOPLATIN
     Indication: INTRACRANIAL GERM CELL TUMOUR
     Dosage: UNK, PART OF FIRST FULL DOSE TRANSPLANT
  4. THIOTEPA. [Suspect]
     Active Substance: THIOTEPA
     Indication: INTRACRANIAL GERM CELL TUMOUR
     Dosage: UNK, PART OF FIRST FULL DOSE TRANSPLANT
  5. MELPHALAN. [Suspect]
     Active Substance: MELPHALAN
     Indication: INTRACRANIAL GERM CELL TUMOUR
     Dosage: UNK, PART OF SECOND TRANSPLANT

REACTIONS (2)
  - Muscular weakness [Recovered/Resolved]
  - Neurological decompensation [Recovered/Resolved]
